FAERS Safety Report 5471377-3 (Version None)
Quarter: 2007Q3

REPORT INFORMATION
  Report Type: 
  Country: None (occurrence: None)
  Receive Date: 20070928
  Receipt Date: 20060914
  Transmission Date: 20080115
  Serious: No
  Sender: FDA-Public Use
  Company Number: US-BRISTOL-MYERS SQUIBB COMPANY-13508916

PATIENT
  Age: 48 Year
  Sex: Male
  Weight: 104 kg

DRUGS (4)
  1. DEFINITY [Suspect]
     Indication: STRESS ECHOCARDIOGRAM
     Dosage: 3CC IN 8CC OF SODIUM CHLORIDE
     Dates: start: 20060914, end: 20060914
  2. SODIUM CHLORIDE [Concomitant]
     Dates: start: 20060914, end: 20060914
  3. LISINOPRIL [Concomitant]
  4. VITAMINS [Concomitant]

REACTIONS (1)
  - BACK PAIN [None]
